FAERS Safety Report 5280326-2 (Version None)
Quarter: 2007Q1

REPORT INFORMATION
  Report Type: 
  Country: None (occurrence: None)
  Receive Date: 20070329
  Receipt Date: 20070323
  Transmission Date: 20070707
  Serious: Yes (Death)
  Sender: FDA-Public Use
  Company Number: DE-ELI_LILLY_AND_COMPANY-DE200703005529

PATIENT
  Age: 38 Year
  Sex: Female

DRUGS (4)
  1. ZYPREXA [Suspect]
     Indication: DEPRESSION
     Dosage: 15 MG, DAILY (1/D)
     Route: 048
     Dates: start: 20060908, end: 20060910
  2. ZYPREXA [Suspect]
     Dosage: 10 MG, DAILY (1/D)
     Route: 048
     Dates: start: 20060911, end: 20060914
  3. MIRTAZAPINE [Concomitant]
     Dosage: 45 MG, UNK
     Route: 048
     Dates: start: 20060908, end: 20060914
  4. LORAZEPAM [Concomitant]
     Dosage: 1.5 MG, UNK
     Route: 048
     Dates: start: 20060911, end: 20060914

REACTIONS (1)
  - COMPLETED SUICIDE [None]
